FAERS Safety Report 21859335 (Version 1)
Quarter: 2023Q1

REPORT INFORMATION
  Report Type: Spontaneous
  Country: PR (occurrence: None)
  Receive Date: 20230112
  Receipt Date: 20230112
  Transmission Date: 20230418
  Serious: Yes (Life-Threatening, Hospitalization)
  Sender: FDA-Public Use
  Company Number: None

PATIENT
  Age: 88 Year
  Sex: Female
  Weight: 59.85 kg

DRUGS (17)
  1. IBRANCE [Suspect]
     Active Substance: PALBOCICLIB
     Indication: Inflammatory carcinoma of the breast
     Dosage: FREQUENCY : DAILY;?
     Route: 048
     Dates: start: 20221223, end: 20230110
  2. GLUCOPHAGE [Concomitant]
     Active Substance: METFORMIN HYDROCHLORIDE
  3. VASOTEC [Concomitant]
     Active Substance: ENALAPRIL MALEATE
  4. HYDROCHLOROTHIAZIDE [Concomitant]
     Active Substance: HYDROCHLOROTHIAZIDE
  5. SYNTHROID [Concomitant]
     Active Substance: LEVOTHYROXINE SODIUM
  6. LIPITOR [Concomitant]
     Active Substance: ATORVASTATIN CALCIUM
  7. PEPCID [Concomitant]
     Active Substance: FAMOTIDINE
  8. BONIVA [Concomitant]
     Active Substance: IBANDRONATE SODIUM
  9. NORVASC [Concomitant]
     Active Substance: AMLODIPINE BESYLATE
  10. ARIMIDEX [Concomitant]
     Active Substance: ANASTROZOLE
  11. XGEVA [Concomitant]
     Active Substance: DENOSUMAB
  12. MAXFE [Concomitant]
     Active Substance: ASCORBIC ACID\BIOTIN\CYANOCOBALAMIN\DOCUSATE SODIUM\FOLIC ACID\IRON\MAGNESIUM\ZINC
  13. Centrum Sylver Women 50+ [Concomitant]
  14. MINERALS\VITAMINS [Concomitant]
     Active Substance: MINERALS\VITAMINS
  15. CHONDROITIN SULFATE A\GLUCOSAMINE [Concomitant]
     Active Substance: CHONDROITIN SULFATE A\GLUCOSAMINE
  16. OMEGA 3 [Concomitant]
     Active Substance: CAPSAICIN
  17. Refresh Optive Mega - 3 [Concomitant]

REACTIONS (2)
  - Pneumonia [None]
  - Inflammation [None]

NARRATIVE: CASE EVENT DATE: 20221226
